FAERS Safety Report 16154927 (Version 1)
Quarter: 2019Q2

REPORT INFORMATION
  Report Type: Spontaneous
  Country: US (occurrence: US)
  Receive Date: 20190403
  Receipt Date: 20190403
  Transmission Date: 20190711
  Serious: Yes (Death, Hospitalization, Other)
  Sender: FDA-Public Use
  Company Number: US-ASTRAZENECA-2019SE49294

PATIENT
  Age: 23114 Day
  Sex: Male
  Weight: 108.9 kg

DRUGS (17)
  1. VICTOZA [Suspect]
     Active Substance: LIRAGLUTIDE
     Dosage: 0.6MG/0.1 ML ONCE DAILY
     Route: 065
     Dates: start: 20100701, end: 201207
  2. PREDNISONE. [Concomitant]
     Active Substance: PREDNISONE
  3. COMPAZINE [Concomitant]
     Active Substance: PROCHLORPERAZINE MALEATE
  4. HUMALOG [Concomitant]
     Active Substance: INSULIN LISPRO
  5. VITAMIN D2 [Concomitant]
     Active Substance: ERGOCALCIFEROL
  6. DEXILANT [Concomitant]
     Active Substance: DEXLANSOPRAZOLE
  7. ZOFRAN [Concomitant]
     Active Substance: ONDANSETRON HYDROCHLORIDE
  8. XANAX [Concomitant]
     Active Substance: ALPRAZOLAM
  9. LOVENOX [Concomitant]
     Active Substance: ENOXAPARIN SODIUM
  10. METHADONE [Concomitant]
     Active Substance: METHADONE HYDROCHLORIDE
  11. LANTUS [Concomitant]
     Active Substance: INSULIN GLARGINE
  12. SIMVASTATIN. [Concomitant]
     Active Substance: SIMVASTATIN
  13. TRAMADOL. [Concomitant]
     Active Substance: TRAMADOL
  14. OXYCODONE [Concomitant]
     Active Substance: OXYCODONE
  15. SENNA [Concomitant]
     Active Substance: SENNA LEAF\SENNOSIDES\SENNOSIDES A AND B
  16. LISINOPRIL. [Concomitant]
     Active Substance: LISINOPRIL
  17. BYETTA [Suspect]
     Active Substance: EXENATIDE
     Dosage: 5 MG
     Route: 065
     Dates: start: 20100120, end: 201002

REACTIONS (2)
  - Pancreatic injury [Unknown]
  - Pancreatic carcinoma [Unknown]

NARRATIVE: CASE EVENT DATE: 20120502
